FAERS Safety Report 15937922 (Version 2)
Quarter: 2019Q1

REPORT INFORMATION
  Report Type: Spontaneous
  Country: CA (occurrence: CA)
  Receive Date: 20190208
  Receipt Date: 20190213
  Transmission Date: 20190417
  Serious: Yes (Other)
  Sender: FDA-Public Use
  Company Number: CA-PFIZER INC-2019057144

PATIENT
  Age: 52 Year
  Sex: Male

DRUGS (5)
  1. CAPECITABINE. [Interacting]
     Active Substance: CAPECITABINE
     Indication: RECTAL ADENOCARCINOMA
     Dosage: 2000 MG, 2X/DAY (PO BID OF CONCURRENT RADIOSENSITIZING CAPECITABINE)
     Route: 048
  2. LACOSAMIDE. [Concomitant]
     Active Substance: LACOSAMIDE
     Dosage: UNK (TITRATED DOWN GRADUALLY)
  3. LACOSAMIDE. [Concomitant]
     Active Substance: LACOSAMIDE
     Dosage: 200 MG, 1X/DAY (PO PER DAY)
     Route: 048
  4. PHENYTOIN. [Interacting]
     Active Substance: PHENYTOIN
     Dosage: 400 MG, 1X/DAY (PREVIOUS DOSE PO PER DAY)
     Route: 048
  5. PHENYTOIN. [Suspect]
     Active Substance: PHENYTOIN
     Indication: MENINGIOMA
     Dosage: 400 MG, 1X/DAY (PO ONCE A DAY)
     Route: 048

REACTIONS (2)
  - Drug interaction [Unknown]
  - Toxicity to various agents [Recovered/Resolved]
